FAERS Safety Report 8454408-8 (Version None)
Quarter: 2012Q2

REPORT INFORMATION
  Report Type: 
  Country: None (occurrence: None)
  Receive Date: 20120621
  Receipt Date: 20120613
  Transmission Date: 20120825
  Serious: Yes (Other)
  Sender: FDA-Public Use
  Company Number: US-BIOGENIDEC-2012BI016561

PATIENT
  Age: 62 Year
  Sex: Female

DRUGS (3)
  1. AVONEX [Suspect]
     Indication: MULTIPLE SCLEROSIS
     Route: 030
     Dates: start: 20110427, end: 20120509
  2. MEDICATIONS (NOS) [Concomitant]
     Indication: DEPRESSION
  3. MEDICATIONS (NOS) [Concomitant]
     Indication: ASTHMA

REACTIONS (10)
  - FEELING OF BODY TEMPERATURE CHANGE [None]
  - PAIN [None]
  - HALLUCINATION [None]
  - BACK PAIN [None]
  - TOOTH FRACTURE [None]
  - MEMORY IMPAIRMENT [None]
  - MUSCLE SPASMS [None]
  - PYREXIA [None]
  - CONVULSION [None]
  - PAIN IN EXTREMITY [None]
